FAERS Safety Report 10271999 (Version 2)
Quarter: 2014Q3

REPORT INFORMATION
  Report Type: Report from Study
  Country: CN (occurrence: CN)
  Receive Date: 20140702
  Receipt Date: 20140702
  Transmission Date: 20150326
  Serious: Yes (Hospitalization)
  Sender: FDA-Public Use
  Company Number: PHHO2008CN12758

PATIENT
  Age: 41 Year
  Sex: Female
  Weight: 66 kg

DRUGS (5)
  1. SOM230 [Suspect]
     Active Substance: PASIREOTIDE
     Indication: ACROMEGALY
     Dosage: 900 UG, BID
     Route: 058
     Dates: start: 20080617, end: 20081022
  2. LIPANTHYL ^BRISTOL-MYERS SQUIBB^ [Suspect]
     Active Substance: FENOFIBRATE
  3. FOSINOPRIL [Concomitant]
     Active Substance: FOSINOPRIL
  4. INSULIN [Concomitant]
     Active Substance: INSULIN NOS
  5. AMLODIPINE [Concomitant]
     Active Substance: AMLODIPINE BESYLATE

REACTIONS (4)
  - Nausea [Recovered/Resolved]
  - Cortisol free urine decreased [Recovered/Resolved]
  - Adrenal insufficiency [Recovered/Resolved]
  - Decreased appetite [Recovered/Resolved]

NARRATIVE: CASE EVENT DATE: 20081002
